FAERS Safety Report 6253882-5 (Version None)
Quarter: 2009Q3

REPORT INFORMATION
  Report Type: 
  Country: None (occurrence: None)
  Receive Date: 20090702
  Receipt Date: 20090622
  Transmission Date: 20100115
  Serious: Yes (Hospitalization)
  Sender: FDA-Public Use
  Company Number: PHHY2009GB22037

PATIENT
  Sex: Female

DRUGS (2)
  1. CLOZARIL [Suspect]
     Indication: SCHIZOPHRENIA
     Dosage: 600 MG DAILY
     Route: 048
     Dates: start: 20060811, end: 20090601
  2. CLOZARIL [Suspect]
     Dosage: 50 MG, BID
     Dates: start: 20090609

REACTIONS (9)
  - ANTIPSYCHOTIC DRUG LEVEL INCREASED [None]
  - ANXIETY [None]
  - BIOPSY KIDNEY [None]
  - COLD SWEAT [None]
  - HYPERHIDROSIS [None]
  - HYPOTENSION [None]
  - RENAL DISORDER [None]
  - THERAPY CESSATION [None]
  - TUBULOINTERSTITIAL NEPHRITIS [None]
